FAERS Safety Report 7822900-2 (Version None)
Quarter: 2011Q4

REPORT INFORMATION
  Report Type: 
  Country: None (occurrence: None)
  Receive Date: 20111018
  Receipt Date: 20110114
  Transmission Date: 20120403
  Serious: No
  Sender: FDA-Public Use
  Company Number: US-ASTRAZENECA-2011SE02733

PATIENT
  Age: 22546 Day
  Sex: Male

DRUGS (1)
  1. SYMBICORT [Suspect]
     Dosage: 80/4.5 MCG, TWO PUFFS, TWO TIMES A DAY.
     Route: 055

REACTIONS (1)
  - FOOT FRACTURE [None]
